FAERS Safety Report 13337677 (Version 3)
Quarter: 2017Q1

REPORT INFORMATION
  Report Type: Report from Study
  Country: US (occurrence: US)
  Receive Date: 20170315
  Receipt Date: 20170330
  Transmission Date: 20170428
  Serious: Yes (Hospitalization, Other)
  Sender: FDA-Public Use
  Company Number: US-BIOGEN-2017BI00366371

PATIENT
  Sex: Female

DRUGS (1)
  1. TYSABRI [Suspect]
     Active Substance: NATALIZUMAB
     Indication: RELAPSING-REMITTING MULTIPLE SCLEROSIS
     Route: 065
     Dates: start: 20121219, end: 20170221

REACTIONS (4)
  - Respiratory failure [Unknown]
  - Pseudomonal sepsis [Recovered/Resolved]
  - Device related infection [Recovered/Resolved]
  - Life support [Recovered/Resolved]
